FAERS Safety Report 6805145-4 (Version None)
Quarter: 2010Q2

REPORT INFORMATION
  Report Type: 
  Country: None (occurrence: None)
  Receive Date: 20100628
  Receipt Date: 20070918
  Transmission Date: 20101027
  Serious: No
  Sender: FDA-Public Use
  Company Number: US-PFIZER INC-2007078044

PATIENT
  Sex: Female
  Weight: 86.4 kg

DRUGS (5)
  1. GEODON [Suspect]
     Indication: SCHIZOPHRENIA
     Route: 048
     Dates: start: 20050901
  2. CLOZARIL [Concomitant]
  3. IMDUR [Concomitant]
  4. FISH OIL [Concomitant]
  5. VITAMINS [Concomitant]

REACTIONS (1)
  - ALOPECIA [None]
